FAERS Safety Report 13081632 (Version 2)
Quarter: 2017Q1

REPORT INFORMATION
  Report Type: Spontaneous
  Country: US (occurrence: US)
  Receive Date: 20170103
  Receipt Date: 20170306
  Transmission Date: 20170428
  Serious: Yes (Death, Hospitalization)
  Sender: FDA-Public Use
  Company Number: US-BAYER-2016-242821

PATIENT
  Age: 68 Year
  Sex: Male

DRUGS (1)
  1. XOFIGO [Suspect]
     Active Substance: RADIUM RA-223 DICHLORIDE
     Indication: PROSTATE CANCER METASTATIC
     Dosage: 166.5 ?CI, UNK
     Route: 042
     Dates: start: 20161129, end: 20161129

REACTIONS (9)
  - Small intestinal haemorrhage [None]
  - Performance status decreased [None]
  - Acute kidney injury [None]
  - Pancytopenia [None]
  - Death [Fatal]
  - Cardiac failure acute [None]
  - Metabolic encephalopathy [None]
  - Urosepsis [None]
  - Hypernatraemia [None]

NARRATIVE: CASE EVENT DATE: 201612
